FAERS Safety Report 4732721-5 (Version None)
Quarter: 2005Q3

REPORT INFORMATION
  Report Type: 
  Country: None (occurrence: None)
  Receive Date: 20050803
  Receipt Date: 20050601
  Transmission Date: 20060218
  Serious: Yes (Other)
  Sender: FDA-Public Use
  Company Number: 2005AP03203

PATIENT
  Age: 61 Year
  Sex: Female

DRUGS (5)
  1. ANAPEINE [Suspect]
     Indication: EPIDURAL ANAESTHESIA
     Route: 008
     Dates: start: 20041006, end: 20041006
  2. ANAPEINE [Suspect]
     Route: 008
     Dates: start: 20041006, end: 20041008
  3. FENTANYL CITRATE [Concomitant]
     Route: 008
     Dates: start: 20041006, end: 20041008
  4. DROLEPTAN [Concomitant]
     Route: 008
     Dates: start: 20041006, end: 20041008
  5. XYLOCAINE [Concomitant]
     Indication: EPIDURAL ANAESTHESIA
     Dosage: TEST DOSE
     Route: 008

REACTIONS (7)
  - BLOOD PRESSURE DECREASED [None]
  - CATHETER RELATED COMPLICATION [None]
  - NEUROLOGICAL SYMPTOM [None]
  - OXYGEN SATURATION DECREASED [None]
  - SENSORIMOTOR DISORDER [None]
  - SPINAL CORD COMPRESSION [None]
  - SUBDURAL EFFUSION [None]
